FAERS Safety Report 9936431 (Version 1)
Quarter: 2014Q1

REPORT INFORMATION
  Report Type: Spontaneous
  Country: US (occurrence: US)
  Receive Date: 20140228
  Receipt Date: 20140228
  Transmission Date: 20141002
  Serious: No
  Sender: FDA-Public Use
  Company Number: US-AMGEN-USASP2014004724

PATIENT
  Age: 55 Year
  Sex: Male

DRUGS (2)
  1. ENBREL [Suspect]
     Indication: PSORIATIC ARTHROPATHY
     Dosage: 50 MG, QWK
     Route: 065
     Dates: start: 20140113
  2. ENBREL [Suspect]
     Indication: PSORIASIS

REACTIONS (2)
  - Sinus disorder [Not Recovered/Not Resolved]
  - Rhinorrhoea [Not Recovered/Not Resolved]
